FAERS Safety Report 9276813 (Version 1)
Quarter: 2013Q2

REPORT INFORMATION
  Report Type: Spontaneous
  Country: US (occurrence: US)
  Receive Date: 20130507
  Receipt Date: 20130507
  Transmission Date: 20140414
  Serious: Yes (Other)
  Sender: FDA-Public Use
  Company Number: US-ACTELION-A-US2013-78286

PATIENT
  Age: 49 Year
  Sex: Female

DRUGS (7)
  1. TRACLEER [Suspect]
     Indication: PULMONARY ARTERIAL HYPERTENSION
     Dosage: 125 MG, BID
     Route: 048
     Dates: start: 201101, end: 20130318
  2. TRACLEER [Suspect]
     Dosage: 62.5 MG, BID
     Route: 048
     Dates: start: 201012, end: 201101
  3. REVATIO [Concomitant]
     Dosage: 20 MG, TID
  4. TYVASO [Concomitant]
  5. PROZAC [Concomitant]
  6. FLEXERIL [Concomitant]
  7. FERROUS SULFATE [Concomitant]

REACTIONS (5)
  - Autoimmune hepatitis [Unknown]
  - Liver function test abnormal [Not Recovered/Not Resolved]
  - Blood alkaline phosphatase increased [Not Recovered/Not Resolved]
  - Aspartate aminotransferase increased [Not Recovered/Not Resolved]
  - Alanine aminotransferase increased [Not Recovered/Not Resolved]
